FAERS Safety Report 16369451 (Version 1)
Quarter: 2019Q2

REPORT INFORMATION
  Report Type: Spontaneous
  Country: US (occurrence: US)
  Receive Date: 20190529
  Receipt Date: 20190529
  Transmission Date: 20190711
  Serious: No
  Sender: FDA-Public Use
  Company Number: US-ASTRAZENECA-2019SE70793

PATIENT
  Sex: Female
  Weight: 113.4 kg

DRUGS (3)
  1. BYDUREON [Suspect]
     Active Substance: EXENATIDE
     Indication: TYPE 2 DIABETES MELLITUS
     Route: 058
     Dates: start: 201903
  2. CLARITIN [Concomitant]
     Active Substance: LORATADINE
     Indication: HYPERSENSITIVITY
  3. POTASSIUM [Concomitant]
     Active Substance: POTASSIUM

REACTIONS (8)
  - Blood cholesterol abnormal [Not Recovered/Not Resolved]
  - Influenza [Recovered/Resolved]
  - Nausea [Recovered/Resolved]
  - Appetite disorder [Recovered/Resolved]
  - Diarrhoea [Recovered/Resolved]
  - Injection site mass [Not Recovered/Not Resolved]
  - Headache [Recovered/Resolved]
  - Injection site pruritus [Unknown]
